FAERS Safety Report 5093911-8 (Version None)
Quarter: 2006Q3

REPORT INFORMATION
  Report Type: 
  Country: None (occurrence: None)
  Receive Date: 20060728
  Receipt Date: 20060609
  Transmission Date: 20061208
  Serious: No
  Sender: FDA-Public Use
  Company Number: 253999

PATIENT
  Age: 51 Year
  Sex: Female
  Weight: 90.7 kg

DRUGS (4)
  1. LEVEMIR [Suspect]
     Indication: INSULIN-REQUIRING TYPE II DIABETES MELLITUS
     Dosage: 10 IU, QD, SUBCUTANEOUS
     Route: 058
     Dates: start: 20060314
  2. NOVOLOG [Suspect]
     Indication: INSULIN-REQUIRING TYPE II DIABETES MELLITUS
     Dosage: 1 IU, PRN, SUBCUTANEOUS
     Route: 058
     Dates: start: 20060314
  3. ZOCOR [Concomitant]
  4. ACTOS [Concomitant]

REACTIONS (1)
  - BLOOD GLUCOSE DECREASED [None]
